FAERS Safety Report 18895342 (Version 2)
Quarter: 2021Q2

REPORT INFORMATION
  Report Type: Spontaneous
  Country: US (occurrence: US)
  Receive Date: 20210215
  Receipt Date: 20210617
  Transmission Date: 20210717
  Serious: Yes (Other)
  Sender: FDA-Public Use
  Company Number: US-PFIZER INC-2021137948

PATIENT
  Age: 35 Year
  Sex: Female
  Weight: 82.55 kg

DRUGS (7)
  1. ELIQUIS [Concomitant]
     Active Substance: APIXABAN
     Indication: BLOOD DISORDER
     Dosage: UNK, 1X/DAY
     Dates: start: 2020
  2. HYDRALAZINE [Concomitant]
     Active Substance: HYDRALAZINE HYDROCHLORIDE
     Indication: BLOOD PRESSURE MEASUREMENT
     Dosage: UNK, 2X/DAY
     Dates: start: 2017
  3. METFORMIN [Concomitant]
     Active Substance: METFORMIN HYDROCHLORIDE
     Dosage: UNK, 2X/DAY. TAKE WITH FOOD
  4. DETROL LA [Suspect]
     Active Substance: TOLTERODINE TARTRATE
     Indication: SLEEP DISORDER
     Dosage: UNK
     Dates: start: 1980
  5. CLONIDINE. [Concomitant]
     Active Substance: CLONIDINE
     Dosage: UNK
  6. TRAZODONE [Concomitant]
     Active Substance: TRAZODONE HYDROCHLORIDE
     Dosage: UNK
  7. FUROSEMIDE. [Concomitant]
     Active Substance: FUROSEMIDE
     Dosage: UNK

REACTIONS (9)
  - Fatigue [Unknown]
  - Cardiac disorder [Unknown]
  - Sleep disorder [Unknown]
  - Urinary tract disorder [Unknown]
  - Nervousness [Unknown]
  - Off label use [Unknown]
  - Polydipsia [Recovered/Resolved]
  - Malaise [Unknown]
  - Nerve injury [Unknown]

NARRATIVE: CASE EVENT DATE: 1980
